FAERS Safety Report 9639359 (Version 1)
Quarter: 2013Q4

REPORT INFORMATION
  Report Type: Spontaneous
  Country: FR (occurrence: FR)
  Receive Date: 20131022
  Receipt Date: 20131022
  Transmission Date: 20140711
  Serious: Yes (Hospitalization)
  Sender: FDA-Public Use
  Company Number: FR-B.I. PHARMACEUTICALS,INC./RIDGEFIELD-2013-FF-02542FF

PATIENT
  Age: 50 Year
  Sex: Female

DRUGS (3)
  1. SIFROL [Suspect]
     Indication: RESTLESS LEGS SYNDROME
     Dosage: 0.18 MG X 2 DAILY
     Route: 048
     Dates: start: 201212
  2. SPIRIVA [Suspect]
     Indication: ASTHMA
     Route: 055
  3. CORTICOIDS [Concomitant]
     Indication: ASTHMA
     Route: 055

REACTIONS (4)
  - Vascular graft [Recovered/Resolved]
  - Dry mouth [Not Recovered/Not Resolved]
  - Dysphagia [Not Recovered/Not Resolved]
  - Off label use [Unknown]
